FAERS Safety Report 6545961-X (Version None)
Quarter: 2010Q1

REPORT INFORMATION
  Report Type: 
  Country: None (occurrence: None)
  Receive Date: 20100121
  Receipt Date: 20100121
  Transmission Date: 20100710
  Serious: Yes (Life-Threatening, Hospitalization, Disabling)
  Sender: FDA-Public Use
  Company Number: None

PATIENT
  Sex: Male
  Weight: 97.1 kg

DRUGS (25)
  1. FLEET PHOSPHO SODA ENEMA [Suspect]
     Indication: CONSTIPATION
     Dates: start: 20100107, end: 20100109
  2. IMDUR [Concomitant]
  3. MICARDIS [Concomitant]
  4. PLAVIX [Concomitant]
  5. OMEPRAZOLE [Concomitant]
  6. DOXAZOSIN MESYLATE [Concomitant]
  7. CARIDEM CD [Concomitant]
  8. TRAZODONE [Concomitant]
  9. EFFEXOR XR [Concomitant]
  10. SPIRIVA [Concomitant]
  11. ADVIR [Concomitant]
  12. FLEXERIL [Concomitant]
  13. FLONASE [Concomitant]
  14. HYDROCHLORTHAZIDE [Concomitant]
  15. ALLOPURINOL [Concomitant]
  16. ASPIRIN [Concomitant]
  17. ATROVENT [Concomitant]
  18. DEPOT TESTOSTERONE [Concomitant]
  19. MULTI-VITAMIN [Concomitant]
  20. LIDOCAINE [Concomitant]
  21. MAGNESIUM OXIDE [Concomitant]
  22. NITROSTAT SL [Concomitant]
  23. OXYCODONE [Concomitant]
  24. OXYGEN [Concomitant]
  25. SIMVASTATIN [Concomitant]

REACTIONS (2)
  - BLOOD CREATININE INCREASED [None]
  - DRUG INEFFECTIVE [None]
